FAERS Safety Report 6833668-0 (Version None)
Quarter: 2010Q3

REPORT INFORMATION
  Report Type: 
  Country: None (occurrence: None)
  Receive Date: 20100712
  Receipt Date: 20070328
  Transmission Date: 20110219
  Serious: No
  Sender: FDA-Public Use
  Company Number: US-PFIZER INC-2007026520

PATIENT
  Age: 62 Year
  Sex: Male
  Weight: 81.65 kg

DRUGS (15)
  1. CHANTIX [Suspect]
     Indication: SMOKING CESSATION THERAPY
     Dates: start: 20070201, end: 20070326
  2. OXYCONTIN [Concomitant]
     Indication: BACK INJURY
  3. CRESTOR [Concomitant]
  4. ACETYLSALICYLIC ACID [Concomitant]
  5. ACTOS [Concomitant]
  6. LASIX [Concomitant]
  7. REGLAN [Concomitant]
  8. PRILOSEC [Concomitant]
  9. VALSARTAN [Concomitant]
  10. COREG [Concomitant]
  11. TAMSULOSIN HYDROCHLORIDE [Concomitant]
  12. TIGAN [Concomitant]
  13. DESYREL [Concomitant]
  14. RESTORIL [Concomitant]
  15. NEURONTIN [Concomitant]

REACTIONS (3)
  - ANXIETY [None]
  - DRUG INEFFECTIVE [None]
  - NAUSEA [None]
